FAERS Safety Report 5140991-7 (Version None)
Quarter: 2006Q4

REPORT INFORMATION
  Report Type: 
  Country: None (occurrence: None)
  Receive Date: 20061101
  Receipt Date: 20050414
  Transmission Date: 20070319
  Serious: Yes (Death, Life-Threatening, Hospitalization)
  Sender: FDA-Public Use
  Company Number: AR-ROCHE-401824

PATIENT
  Age: 69 Year
  Sex: Female

DRUGS (5)
  1. CAPECITABINE [Suspect]
     Indication: BREAST CANCER
     Route: 048
     Dates: start: 20050307, end: 20050312
  2. IXABEPILONE [Suspect]
     Indication: BREAST CANCER
     Route: 042
     Dates: start: 20050307, end: 20050307
  3. RANITIDINE [Concomitant]
     Dates: start: 20050308
  4. PROPOXYPHENE HYDROCHLORIDE [Concomitant]
     Dates: start: 20050308, end: 20050313
  5. METOCLOPRAMIDE [Concomitant]
     Dates: start: 20050311

REACTIONS (8)
  - ARRHYTHMIA SUPRAVENTRICULAR [None]
  - DIARRHOEA [None]
  - FEBRILE NEUTROPENIA [None]
  - GASTROINTESTINAL HAEMORRHAGE [None]
  - ILEUS [None]
  - NEOPLASM MALIGNANT [None]
  - SEPTIC SHOCK [None]
  - SOMNOLENCE [None]
